FAERS Safety Report 13800962 (Version 1)
Quarter: 2017Q3

REPORT INFORMATION
  Report Type: Spontaneous
  Country: TR (occurrence: TR)
  Receive Date: 20170727
  Receipt Date: 20170727
  Transmission Date: 20171127
  Serious: Yes (Hospitalization)
  Sender: FDA-Public Use
  Company Number: TR-TEVA-790924ISR

PATIENT
  Age: 43 Year
  Sex: Female
  Weight: 90 kg

DRUGS (2)
  1. SINDAXEL [Suspect]
     Active Substance: PACLITAXEL
     Indication: OVARIAN CANCER
     Dosage: 120 MILLIGRAM DAILY; SINDAXEL 150 MG VIAL
     Route: 042
     Dates: start: 20170616, end: 20170706
  2. SINDAXEL [Suspect]
     Active Substance: PACLITAXEL
     Dosage: 200 MILLIGRAM DAILY; SINDAXEL 100 MG VIAL
     Route: 042
     Dates: start: 20170616, end: 20170706

REACTIONS (3)
  - Hypotension [Not Recovered/Not Resolved]
  - Agitation [Not Recovered/Not Resolved]
  - Anaphylactic shock [Not Recovered/Not Resolved]

NARRATIVE: CASE EVENT DATE: 20170706
